FAERS Safety Report 8799150 (Version 1)
Quarter: 2012Q4

REPORT INFORMATION
  Report Type: Spontaneous
  Country: US (occurrence: None)
  Receive Date: 20120918
  Receipt Date: 20120918
  Transmission Date: 20130627
  Serious: Yes (Other)
  Sender: FDA-Public Use
  Company Number: None

PATIENT
  Sex: Male
  Weight: 91.63 kg

DRUGS (7)
  1. MULTAQ [Suspect]
     Indication: ATRIAL FIBRILLATION
     Route: 048
     Dates: start: 201103, end: 201109
  2. ASPIRIN [Concomitant]
  3. CRESTOR [Concomitant]
  4. DILTIAZEM [Concomitant]
  5. HCTZ [Concomitant]
  6. ZETIA [Concomitant]
  7. CIALIS [Concomitant]

REACTIONS (1)
  - Rash [None]
